FAERS Safety Report 6460471-6 (Version None)
Quarter: 2009Q4

REPORT INFORMATION
  Report Type: 
  Country: None (occurrence: None)
  Receive Date: 20091130
  Receipt Date: 20091119
  Transmission Date: 20100525
  Serious: Yes (Death)
  Sender: FDA-Public Use
  Company Number: JP-ROCHE-670986

PATIENT
  Sex: Male

DRUGS (2)
  1. TAMIFLU [Suspect]
     Indication: H1N1 INFLUENZA
     Route: 048
     Dates: start: 20091001
  2. HORMONE [Concomitant]
     Dosage: DRUG NAME: ADRENAL HORMONE PREPARATIONS() DOSE FORM: ORAL FORMULATION (NOT OTHERWISE SPECIFIED).
     Route: 048

REACTIONS (1)
  - PNEUMONIA [None]
